FAERS Safety Report 5532134-2 (Version None)
Quarter: 2007Q4

REPORT INFORMATION
  Report Type: 
  Country: None (occurrence: None)
  Receive Date: 20071129
  Receipt Date: 20071129
  Transmission Date: 20080405
  Serious: No
  Sender: FDA-Public Use
  Company Number: None

PATIENT
  Age: 50 Year
  Sex: Male

DRUGS (1)
  1. VARENICLINE [Suspect]
     Indication: SMOKING CESSATION THERAPY
     Dosage: 1MG BID PO
     Route: 048
     Dates: start: 20070813, end: 20071105

REACTIONS (6)
  - ALCOHOL ABUSE [None]
  - DEPRESSION [None]
  - MOOD ALTERED [None]
  - PARANOIA [None]
  - THINKING ABNORMAL [None]
  - TREATMENT NONCOMPLIANCE [None]
